FAERS Safety Report 5117050-2 (Version None)
Quarter: 2006Q3

REPORT INFORMATION
  Report Type: 
  Country: None (occurrence: None)
  Receive Date: 20060925
  Receipt Date: 20060911
  Transmission Date: 20061208
  Serious: Yes (Other)
  Sender: FDA-Public Use
  Company Number: 2006111092

PATIENT
  Age: 49 Year
  Sex: Female
  Weight: 57 kg

DRUGS (3)
  1. PREGABALIN (PREGABALIN) [Suspect]
     Indication: NEURALGIA
     Dosage: 100 MG (50 MG, 2 IN 1 D), ORAL
     Route: 048
     Dates: start: 20060403, end: 20060703
  2. NORTRIPTYLINE (NORTRIPTLINE) [Concomitant]
  3. ACETAMINOPHEN [Concomitant]

REACTIONS (3)
  - CONDITION AGGRAVATED [None]
  - DRUG WITHDRAWAL SYNDROME [None]
  - PAIN [None]
